FAERS Safety Report 8208663-X (Version None)
Quarter: 2012Q1

REPORT INFORMATION
  Report Type: 
  Country: None (occurrence: None)
  Receive Date: 20120314
  Receipt Date: 20120306
  Transmission Date: 20120608
  Serious: Yes (Hospitalization)
  Sender: FDA-Public Use
  Company Number: US-BAYER-2011-070672

PATIENT
  Age: 25 Year
  Sex: Female
  Weight: 120.64 kg

DRUGS (15)
  1. YASMIN [Suspect]
     Dosage: UNK
     Dates: start: 20010101, end: 20040101
  2. YASMIN [Suspect]
     Dosage: UNK
     Dates: start: 20070315
  3. CYMBALTA [Concomitant]
  4. PROPOXYPHENE HYDROCHLORIDE [Concomitant]
     Dosage: 650 MG, UNK
  5. ZELNORM [Concomitant]
  6. SPIRONOLACTONE [Concomitant]
  7. YAZ [Suspect]
     Dosage: UNK
     Dates: start: 20010101, end: 20040101
  8. YASMIN [Suspect]
     Dosage: UNK
     Dates: start: 20060411
  9. YAZ [Suspect]
     Dosage: UNK
     Dates: start: 20070315
  10. METFORMIN [Concomitant]
  11. MARIJUANA [Concomitant]
  12. YAZ [Suspect]
     Dosage: UNK
     Dates: start: 20060411
  13. YAZ [Suspect]
  14. NEXIUM [Concomitant]
  15. VITAMIN TAB [Concomitant]

REACTIONS (3)
  - ABDOMINAL PAIN [None]
  - PAIN [None]
  - CHOLELITHIASIS [None]
